FAERS Safety Report 5100067-1 (Version None)
Quarter: 2006Q3

REPORT INFORMATION
  Report Type: 
  Country: None (occurrence: None)
  Receive Date: 20060908
  Receipt Date: 20060902
  Transmission Date: 20061208
  Serious: Yes (Other)
  Sender: FDA-Public Use
  Company Number: US-GLAXOSMITHKLINE-A0619178A

PATIENT
  Sex: Female

DRUGS (8)
  1. NICORETTE [Suspect]
     Indication: ILL-DEFINED DISORDER
     Dosage: 2MG SEE DOSAGE TEXT
     Route: 065
     Dates: start: 20000801
  2. ZOLOFT [Concomitant]
     Dosage: 250MG PER DAY
  3. MIRAPEX [Concomitant]
     Dosage: .13MG FOUR TIMES PER DAY
  4. VALIUM [Concomitant]
  5. SINGULAIR [Concomitant]
  6. IPRATROPIUM BROMIDE [Concomitant]
  7. QVAR 40 [Concomitant]
  8. ALBUTEROL [Concomitant]

REACTIONS (2)
  - DEPENDENCE [None]
  - THERAPEUTIC RESPONSE UNEXPECTED [None]
